FAERS Safety Report 9133559 (Version 3)
Quarter: 2013Q3

REPORT INFORMATION
  Report Type: Spontaneous
  Country: FR (occurrence: FR)
  Receive Date: 20130301
  Receipt Date: 20130726
  Transmission Date: 20140515
  Serious: Yes (Hospitalization)
  Sender: FDA-Public Use
  Company Number: PHHY2013FR018645

PATIENT
  Age: 85 Year
  Sex: Female

DRUGS (6)
  1. AMOXICILLIN SANDOZ [Suspect]
     Route: 048
     Dates: start: 20130109, end: 20130112
  2. OXOMEMAZINE SANDOZ [Concomitant]
     Route: 048
     Dates: start: 20130109, end: 20130112
  3. CARBOCISTEINE [Concomitant]
     Dates: start: 20130104, end: 20130109
  4. PREDNISOLONE [Concomitant]
     Dosage: 20 MG, UNK
     Dates: start: 20130109, end: 20130112
  5. DOLIPRANE [Concomitant]
     Dates: start: 20130104
  6. RHINOTROPHYL [Concomitant]
     Dates: start: 20130104, end: 20130109

REACTIONS (4)
  - Eosinophilia [Unknown]
  - Chills [Recovered/Resolved]
  - Dermatitis exfoliative [Recovered/Resolved]
  - Pruritus [Recovered/Resolved]
